FAERS Safety Report 8616378-9 (Version None)
Quarter: 2012Q3

REPORT INFORMATION
  Report Type: 
  Country: None (occurrence: None)
  Receive Date: 20120823
  Receipt Date: 20120816
  Transmission Date: 20120928
  Serious: Yes (Death)
  Sender: FDA-Public Use
  Company Number: GB-009507513-1207GBR006332

PATIENT

DRUGS (27)
  1. SPIRONOLACTONE [Suspect]
  2. AMIODARONE HCL [Concomitant]
  3. AMOXICILLIN AND CLAVULANATE POTASSIUM [Concomitant]
  4. FUROSEMIDE [Concomitant]
  5. METHOTREXATE [Concomitant]
  6. ADENOSINE [Concomitant]
  7. DIORALYTE [Concomitant]
  8. FORTISIP [Concomitant]
  9. HEPARIN [Concomitant]
     Indication: PULMONARY EMBOLISM
  10. OMEPRAZOLE [Concomitant]
  11. ADCAL-D3 [Concomitant]
  12. TEICOPLANIN [Concomitant]
     Indication: PNEUMONIA
  13. WARFARIN SODIUM [Concomitant]
     Indication: PULMONARY EMBOLISM
  14. DALTEPARIN SODIUM [Concomitant]
  15. DICLOFENAC DIETHYLAMINE [Concomitant]
  16. FOLIC ACID [Concomitant]
  17. GENTAMICIN [Concomitant]
  18. BUMETANIDE [Suspect]
  19. CLARITHROMYCIN [Suspect]
     Indication: PNEUMONIA
     Dosage: 500 MG, BID
     Route: 048
     Dates: start: 20120512, end: 20120521
  20. METOCLOPRAMIDE [Concomitant]
  21. ZOCOR [Suspect]
     Route: 048
  22. BISOPROLOL FUMARATE [Concomitant]
  23. CANDESARTAN CILEXETIL [Concomitant]
  24. ACETAMINOPHEN AND CODEINE PHOSPHATE [Concomitant]
  25. CLOTRIMAZOLE [Concomitant]
  26. ACETAMINOPHEN [Concomitant]
  27. TRAMADOL HYDROCHLORIDE [Concomitant]

REACTIONS (22)
  - FLUID OVERLOAD [None]
  - RASH GENERALISED [None]
  - HAEMOGLOBIN DECREASED [None]
  - PAIN [None]
  - OEDEMA PERIPHERAL [None]
  - ECZEMA [None]
  - PRURITUS [None]
  - EXFOLIATIVE RASH [None]
  - STEVENS-JOHNSON SYNDROME [None]
  - TOXIC EPIDERMAL NECROLYSIS [None]
  - RASH PRURITIC [None]
  - ATRIAL FIBRILLATION [None]
  - BLISTER [None]
  - RASH MACULO-PAPULAR [None]
  - HYPERSENSITIVITY [None]
  - ERYTHEMA [None]
  - BLOOD CREATININE INCREASED [None]
  - SCAB [None]
  - DRY SKIN [None]
  - SWELLING [None]
  - RENAL FAILURE ACUTE [None]
  - PETECHIAE [None]
